FAERS Safety Report 7515313-4 (Version None)
Quarter: 2011Q2

REPORT INFORMATION
  Report Type: 
  Country: None (occurrence: None)
  Receive Date: 20110601
  Receipt Date: 20110524
  Transmission Date: 20111010
  Serious: Yes (Death, Hospitalization, Other)
  Sender: FDA-Public Use
  Company Number: ES-ELI_LILLY_AND_COMPANY-ES201103005650

PATIENT
  Age: 52 Year
  Sex: Female

DRUGS (9)
  1. ENOXAPARIN SODIUM [Concomitant]
     Indication: CEREBROVASCULAR ACCIDENT
     Dosage: 60 UNK, UNKNOWN
     Dates: start: 20101101
  2. ALIMTA [Suspect]
     Indication: ADENOCARCINOMA
     Dosage: 860 MG, UNKNOWN
     Route: 042
     Dates: start: 20110104, end: 20110104
  3. CARBOPLATIN [Concomitant]
     Dosage: UNK
     Dates: start: 20110204, end: 20110204
  4. FOLIC ACID [Concomitant]
     Indication: PROPHYLAXIS
     Dosage: UNK, UNKNOWN
     Route: 065
  5. MORPHINE SULFATE [Concomitant]
     Indication: ANALGESIC THERAPY
     Dosage: UNK, UNKNOWN
     Route: 048
     Dates: start: 20100220, end: 20110305
  6. METOCLOPRAMIDE [Concomitant]
     Indication: ANTIEMETIC SUPPORTIVE CARE
     Dosage: UNK, UNKNOWN
     Route: 065
  7. VITAMIN B-12 [Concomitant]
     Dosage: UNK, UNKNOWN
     Route: 065
  8. CARBOPLATIN [Concomitant]
     Indication: LUNG ADENOCARCINOMA
     Dosage: 430MG, UNKNOWN
     Route: 065
     Dates: start: 20110104, end: 20110104
  9. ALIMTA [Suspect]
     Dosage: UNK UNK, UNKNOWN
     Route: 065
     Dates: start: 20110204, end: 20110204

REACTIONS (10)
  - RENAL FAILURE ACUTE [None]
  - OESOPHAGITIS [None]
  - HAEMOLYTIC URAEMIC SYNDROME [None]
  - COMA [None]
  - PERICARDITIS URAEMIC [None]
  - MUCOSAL INFLAMMATION [None]
  - DISSEMINATED INTRAVASCULAR COAGULATION [None]
  - OESOPHAGEAL ULCER [None]
  - CEREBRAL HAEMORRHAGE [None]
  - PANCYTOPENIA [None]
